FAERS Safety Report 16582258 (Version 3)
Quarter: 2019Q3

REPORT INFORMATION
  Report Type: Report from Study
  Country: None (occurrence: US)
  Receive Date: 20190717
  Receipt Date: 20190902
  Transmission Date: 20191004
  Serious: Yes (Hospitalization)
  Sender: FDA-Public Use
  Company Number: US-ABBVIE-19K-163-2786292-00

PATIENT
  Age: 89 Year
  Sex: Male
  Weight: 62.65 kg

DRUGS (1)
  1. HUMIRA [Suspect]
     Active Substance: ADALIMUMAB
     Indication: PSORIASIS
     Route: 058
     Dates: start: 2013

REACTIONS (11)
  - Hypotension [Recovering/Resolving]
  - Upper respiratory tract infection [Recovered/Resolved]
  - Asthenia [Recovered/Resolved]
  - Staphylococcal infection [Recovering/Resolving]
  - Weight decreased [Not Recovered/Not Resolved]
  - Diarrhoea [Recovered/Resolved]
  - Staphylococcal infection [Recovered/Resolved]
  - Fatigue [Unknown]
  - Ocular hyperaemia [Unknown]
  - Asthenia [Unknown]
  - Eye swelling [Unknown]

NARRATIVE: CASE EVENT DATE: 201905
